FAERS Safety Report 5709360-2 (Version None)
Quarter: 2008Q2

REPORT INFORMATION
  Report Type: 
  Country: None (occurrence: None)
  Receive Date: 20080418
  Receipt Date: 20080409
  Transmission Date: 20081010
  Serious: Yes (Death, Hospitalization, Other)
  Sender: FDA-Public Use
  Company Number: US-BRISTOL-MYERS SQUIBB COMPANY-14145130

PATIENT
  Age: 44 Year
  Sex: Male

DRUGS (12)
  1. ATAZANAVIR SULFATE [Suspect]
     Indication: HIV INFECTION
     Route: 048
     Dates: start: 20061018, end: 20071219
  2. RITONAVIR [Interacting]
     Indication: HIV INFECTION
     Route: 048
     Dates: start: 20061018, end: 20071219
  3. TRUVADA [Suspect]
     Indication: HIV INFECTION
     Dates: start: 20061018, end: 20071219
  4. EPZICOM [Suspect]
     Indication: HIV INFECTION
     Dates: start: 20061018, end: 20071219
  5. BLINDED: PLACEBO [Suspect]
     Indication: HIV INFECTION
     Dates: start: 20061018, end: 20071219
  6. METHAMPHETAMINE HCL [Interacting]
  7. LISINOPRIL [Concomitant]
  8. CITALOPRAM HYDROBROMIDE [Concomitant]
  9. KLONOPIN [Concomitant]
  10. FINASTERIDE [Concomitant]
  11. TRAZODONE HCL [Concomitant]
  12. DOXAZOSIN [Concomitant]

REACTIONS (5)
  - AIDS RELATED COMPLICATION [None]
  - DEPRESSION [None]
  - DRUG INTERACTION [None]
  - OVERDOSE [None]
  - PNEUMONIA [None]
